FAERS Safety Report 19618750 (Version 2)
Quarter: 2022Q2

REPORT INFORMATION
  Report Type: Spontaneous
  Country: US (occurrence: None)
  Receive Date: 20210727
  Receipt Date: 20220621
  Transmission Date: 20220721
  Serious: No
  Sender: FDA-Public Use
  Company Number: US-ROCHE-2821803

PATIENT
  Sex: Female

DRUGS (4)
  1. XELODA [Suspect]
     Active Substance: CAPECITABINE
     Indication: Product used for unknown indication
     Route: 065
  2. TUKYSA [Suspect]
     Active Substance: TUCATINIB
     Indication: Breast cancer female
     Dosage: TUCATINIB WAS PLACED ON HOLD 19/APR/2021
     Route: 048
     Dates: start: 20210412
  3. TUKYSA [Suspect]
     Active Substance: TUCATINIB
     Indication: HER2 positive breast cancer
     Route: 048
  4. TUKYSA [Suspect]
     Active Substance: TUCATINIB
     Indication: Breast cancer female
     Route: 065

REACTIONS (7)
  - Nausea [Recovering/Resolving]
  - Vomiting [Recovering/Resolving]
  - Skin fissures [Unknown]
  - Peripheral swelling [Unknown]
  - Skin discolouration [Unknown]
  - Diarrhoea [Unknown]
  - Decreased appetite [Recovering/Resolving]
